FAERS Safety Report 11678127 (Version 1)
Quarter: 2015Q4

REPORT INFORMATION
  Report Type: Spontaneous
  Country: US (occurrence: US)
  Receive Date: 20151027
  Receipt Date: 20151027
  Transmission Date: 20160304
  Serious: No
  Sender: FDA-Public Use
  Company Number: US-ELI_LILLY_AND_COMPANY-US201009003568

PATIENT
  Age: 64 Year
  Sex: Female

DRUGS (3)
  1. FORTEO [Suspect]
     Active Substance: TERIPARATIDE
     Indication: OSTEOPOROSIS
     Dosage: 20 UG, DAILY (1/D)
     Dates: start: 200906
  2. FORTEO [Suspect]
     Active Substance: TERIPARATIDE
     Dosage: 20 UG, DAILY (1/D)
  3. FOSAMAX [Concomitant]
     Active Substance: ALENDRONATE SODIUM
     Dates: start: 2000

REACTIONS (13)
  - Myalgia [Unknown]
  - Activated partial thromboplastin time prolonged [Unknown]
  - Arthritis [Unknown]
  - Vitamin D decreased [Unknown]
  - Back pain [Unknown]
  - Prothrombin time prolonged [Unknown]
  - Contusion [Unknown]
  - Contusion [Recovered/Resolved]
  - Chest pain [Unknown]
  - Blood alkaline phosphatase increased [Unknown]
  - Musculoskeletal pain [Not Recovered/Not Resolved]
  - Neck pain [Unknown]
  - Intervertebral disc degeneration [Unknown]

NARRATIVE: CASE EVENT DATE: 201009
